FAERS Safety Report 17201975 (Version 1)
Quarter: 2019Q4

REPORT INFORMATION
  Report Type: Spontaneous
  Country: DE (occurrence: DE)
  Receive Date: 20191226
  Receipt Date: 20191226
  Transmission Date: 20200122
  Serious: Yes (Other)
  Sender: FDA-Public Use
  Company Number: DE-BAUSCH-BL-2019-066054

PATIENT
  Age: 23 Year
  Sex: Female

DRUGS (4)
  1. VITAMIN D3 [Concomitant]
     Active Substance: CHOLECALCIFEROL
     Indication: PRODUCT USED FOR UNKNOWN INDICATION
  2. METHOTREXATE SODIUM. [Suspect]
     Active Substance: METHOTREXATE SODIUM
     Indication: PRODUCT USED FOR UNKNOWN INDICATION
     Route: 058
  3. PREDNISOLONE. [Suspect]
     Active Substance: PREDNISOLONE
     Indication: PRODUCT USED FOR UNKNOWN INDICATION
     Dosage: AT DESCENDING DOSAGES
     Route: 065
  4. FOLIC ACID. [Concomitant]
     Active Substance: FOLIC ACID
     Indication: PRODUCT USED FOR UNKNOWN INDICATION
     Dosage: ON THE DAYS AFTER METHOTREXATE ADMINISTRATION
     Route: 048

REACTIONS (8)
  - Leukopenia [Unknown]
  - Aphthous ulcer [Unknown]
  - C-reactive protein increased [Unknown]
  - Raynaud^s phenomenon [Unknown]
  - Anaemia [Unknown]
  - Photosensitivity reaction [Unknown]
  - Thrombocytopenia [Unknown]
  - Condition aggravated [Unknown]
